FAERS Safety Report 4600446-2 (Version None)
Quarter: 2005Q1

REPORT INFORMATION
  Report Type: 
  Country: None (occurrence: None)
  Receive Date: 20050304
  Receipt Date: 20050221
  Transmission Date: 20050727
  Serious: Yes (Hospitalization)
  Sender: FDA-Public Use
  Company Number: 2005-DE-00696GD

PATIENT
  Age: 29 Year
  Sex: Male

DRUGS (5)
  1. MORPHINSULFAT (MORPHINE SULFATE) [Suspect]
     Indication: CROHN'S DISEASE
     Dosage: SEE IMAGE
  2. MORPHINSULFAT (MORPHINE SULFATE) [Suspect]
     Indication: POST PROCEDURAL PAIN
     Dosage: SEE IMAGE
  3. FENTANYL [Suspect]
     Indication: CROHN'S DISEASE
     Dosage: SEE IMAGE
  4. FENTANYL [Suspect]
     Indication: POST PROCEDURAL PAIN
     Dosage: SEE IMAGE
  5. BUPIVACAINE [Suspect]
     Indication: POST PROCEDURAL PAIN
     Dosage: (SEE TEXT), ED

REACTIONS (10)
  - ABDOMINAL DISTENSION [None]
  - ABDOMINAL PAIN [None]
  - ABDOMINAL TENDERNESS [None]
  - DRUG WITHDRAWAL SYNDROME [None]
  - ENTEROCUTANEOUS FISTULA [None]
  - INADEQUATE ANALGESIA [None]
  - INTESTINAL STOMA COMPLICATION [None]
  - POST PROCEDURAL COMPLICATION [None]
  - POST PROCEDURAL FISTULA [None]
  - SMALL INTESTINAL OBSTRUCTION [None]
